FAERS Safety Report 22921451 (Version 2)
Quarter: 2024Q3

REPORT INFORMATION
  Report Type: Spontaneous
  Country: US (occurrence: None)
  Receive Date: 20230908
  Receipt Date: 20240906
  Transmission Date: 20241017
  Serious: No
  Sender: DOMPE FARMACEUTICI
  Company Number: US-FARMAPROD-202306-1812

PATIENT
  Age: 79 Year
  Sex: Female
  Weight: 70.31 kg

DRUGS (16)
  1. OXERVATE [Suspect]
     Active Substance: CENEGERMIN-BKBJ
     Indication: Neurotrophic keratopathy
     Route: 047
     Dates: start: 20230608
  2. OXERVATE [Suspect]
     Active Substance: CENEGERMIN-BKBJ
  3. OXERVATE [Suspect]
     Active Substance: CENEGERMIN-BKBJ
  4. OXERVATE [Suspect]
     Active Substance: CENEGERMIN-BKBJ
  5. PROBIOTICS NOS [Concomitant]
     Active Substance: PROBIOTICS NOS
     Dosage: 10 BILLION CELL
  6. SYSTANE (HYPROMELLOSE 2910 (4000 MPA.S)) [Concomitant]
     Active Substance: HYPROMELLOSE 2910 (4000 MPA.S)
     Dosage: 0.3 %-0.4%
  7. TRICON [Concomitant]
     Active Substance: ASCORBIC ACID\CYANOCOBALAMIN\FERROUS FUMARATE\FOLIC ACID
     Dosage: 110-0.5 MG
  8. OMEPRAZOLE [Concomitant]
     Active Substance: OMEPRAZOLE
  9. LEVOTHYROXINE SODIUM [Concomitant]
     Active Substance: LEVOTHYROXINE SODIUM
  10. VITAMIN B12 [Concomitant]
     Active Substance: CYANOCOBALAMIN
  11. AMLODIPINE BESYLATE [Concomitant]
     Active Substance: AMLODIPINE BESYLATE
  12. VITAMIN D3 [Concomitant]
     Active Substance: CHOLECALCIFEROL
  13. EZETIMIBE [Concomitant]
     Active Substance: EZETIMIBE
  14. GABAPENTIN [Concomitant]
     Active Substance: GABAPENTIN
  15. TRAMADOL HCL [Concomitant]
     Active Substance: TRAMADOL HYDROCHLORIDE
  16. URSODIOL [Concomitant]
     Active Substance: URSODIOL

REACTIONS (11)
  - Headache [Unknown]
  - Eye irritation [Not Recovered/Not Resolved]
  - Ocular discomfort [Unknown]
  - Product administration error [Unknown]
  - Madarosis [Unknown]
  - Eye pain [Not Recovered/Not Resolved]
  - Product use issue [Unknown]
  - Product dose omission issue [Unknown]
  - Foreign body sensation in eyes [Not Recovered/Not Resolved]
  - Eyelid irritation [Not Recovered/Not Resolved]
  - Periorbital irritation [Not Recovered/Not Resolved]

NARRATIVE: CASE EVENT DATE: 20230609
